FAERS Safety Report 6565807-3 (Version None)
Quarter: 2010Q1

REPORT INFORMATION
  Report Type: 
  Country: None (occurrence: None)
  Receive Date: 20100201
  Receipt Date: 20091217
  Transmission Date: 20100710
  Serious: No
  Sender: FDA-Public Use
  Company Number: US-ABBOTT-09P-163-0615071-00

PATIENT
  Sex: Male
  Weight: 81.72 kg

DRUGS (9)
  1. LUPRON DEPOT [Suspect]
     Indication: PROSTATE CANCER
     Dates: start: 20090901
  2. DIOVAN [Concomitant]
     Indication: HYPERTENSION
  3. PLAVIX [Concomitant]
     Indication: LEG AMPUTATION
  4. PLAVIX [Concomitant]
     Indication: ANGIOPATHY
  5. UNKNOWN CHOLESTEROL MEDICATION [Concomitant]
     Indication: BLOOD CHOLESTEROL INCREASED
  6. HUMALIN INSULIN [Concomitant]
     Indication: DRUG USE FOR UNKNOWN INDICATION
  7. HUMALOG [Concomitant]
     Indication: DIABETES MELLITUS
  8. UNKNOWN EYE DROPS [Concomitant]
     Indication: BLINDNESS UNILATERAL
  9. UNKNOWN EYE DROPS [Concomitant]
     Indication: DIABETIC RETINOPATHY

REACTIONS (1)
  - MUSCLE SPASMS [None]
